FAERS Safety Report 6900000-3 (Version None)
Quarter: 2010Q3

REPORT INFORMATION
  Report Type: 
  Country: None (occurrence: None)
  Receive Date: 20100803
  Receipt Date: 20100719
  Transmission Date: 20110219
  Serious: Yes (Hospitalization)
  Sender: FDA-Public Use
  Company Number: PHHO2010KR09202

PATIENT
  Sex: Female
  Weight: 47.7 kg

DRUGS (2)
  1. EXELON [Suspect]
     Indication: DEMENTIA ALZHEIMER'S TYPE
     Dosage: UNK
     Dates: start: 20100520, end: 20100603
  2. REMINYL (GALANTAMINE HYDROBROMIDE) [Interacting]

REACTIONS (5)
  - DRUG INTERACTION [None]
  - GASTRITIS [None]
  - GASTROENTERITIS [None]
  - NAUSEA [None]
  - VOMITING [None]
